FAERS Safety Report 6490754-5 (Version None)
Quarter: 2009Q4

REPORT INFORMATION
  Report Type: 
  Country: None (occurrence: None)
  Receive Date: 20091211
  Receipt Date: 20091130
  Transmission Date: 20100525
  Serious: Yes (Other)
  Sender: FDA-Public Use
  Company Number: US-ELI_LILLY_AND_COMPANY-US200912000401

PATIENT
  Sex: Male

DRUGS (17)
  1. PROZAC [Suspect]
     Dosage: UNK, UNKNOWN
     Route: 065
  2. CYMBALTA [Suspect]
     Dosage: UNK, UNKNOWN
     Route: 065
  3. ZYPREXA [Suspect]
     Dosage: UNK, UNKNOWN
     Route: 065
  4. ZOLOFT [Concomitant]
     Dosage: UNK, UNKNOWN
     Route: 065
  5. TRAZODONE HCL [Concomitant]
     Dosage: UNK, UNKNOWN
     Route: 065
  6. DOXEPIN HCL [Concomitant]
     Dosage: UNK, UNKNOWN
     Route: 065
  7. MIRTAZAPINE [Concomitant]
     Dosage: UNK, UNKNOWN
     Route: 065
  8. PRISTIQ [Concomitant]
     Indication: DEPRESSION
     Dosage: 50 MG, DAILY (1/D)
     Route: 048
     Dates: start: 20090316
  9. EFFEXOR [Concomitant]
     Indication: DEPRESSION
     Dosage: 75 MG, DAILY (1/D)
     Route: 065
     Dates: start: 19930101
  10. VITAMINS [Concomitant]
     Dosage: UNK, UNKNOWN
     Route: 065
  11. FISH OIL [Concomitant]
     Dosage: UNK, UNKNOWN
     Route: 065
  12. WELLBUTRIN [Concomitant]
     Dosage: UNK, UNKNOWN
     Route: 065
  13. SEROQUEL [Concomitant]
     Dosage: UNK, UNKNOWN
     Route: 065
  14. LEXAPRO [Concomitant]
     Dosage: UNK, UNKNOWN
     Route: 065
  15. PAROXETINE [Concomitant]
     Dosage: UNK, UNKNOWN
     Route: 065
  16. PAXIL [Concomitant]
     Dosage: UNK, UNKNOWN
     Route: 065
  17. DEPAKOTE [Concomitant]
     Dosage: UNK, UNKNOWN
     Route: 065

REACTIONS (4)
  - DIARRHOEA [None]
  - DIVERTICULITIS [None]
  - DRUG INEFFECTIVE [None]
  - SUICIDE ATTEMPT [None]
